APPROVED DRUG PRODUCT: CYPROHEPTADINE HYDROCHLORIDE
Active Ingredient: CYPROHEPTADINE HYDROCHLORIDE
Strength: 2MG/5ML
Dosage Form/Route: SYRUP;ORAL
Application: A091295 | Product #001
Applicant: PHARMACEUTICAL ASSOC INC
Approved: Mar 28, 2013 | RLD: No | RS: No | Type: DISCN